FAERS Safety Report 11393141 (Version 1)
Quarter: 2015Q3

REPORT INFORMATION
  Report Type: Spontaneous
  Country: US (occurrence: US)
  Receive Date: 20150818
  Receipt Date: 20150818
  Transmission Date: 20151125
  Serious: No
  Sender: FDA-Public Use
  Company Number: US-BAYER-2015-399543

PATIENT
  Age: 72 Year
  Sex: Female
  Weight: 83.45 kg

DRUGS (13)
  1. CARDIZEM [Concomitant]
     Active Substance: DILTIAZEM HYDROCHLORIDE
  2. PREVACID [Concomitant]
     Active Substance: LANSOPRAZOLE
  3. MIRALAX [Suspect]
     Active Substance: POLYETHYLENE GLYCOL 3350
     Indication: CONSTIPATION
     Dosage: 1 DF, QD
     Route: 048
     Dates: start: 20150806, end: 20150810
  4. XANAX [Concomitant]
     Active Substance: ALPRAZOLAM
  5. CARDURA [Concomitant]
     Active Substance: DOXAZOSIN MESYLATE
  6. GLUCOTROL [Concomitant]
     Active Substance: GLIPIZIDE
  7. MESALAMINE. [Concomitant]
     Active Substance: MESALAMINE
  8. ZOLOFT [Concomitant]
     Active Substance: SERTRALINE HYDROCHLORIDE
  9. DITROPAN [Concomitant]
     Active Substance: OXYBUTYNIN CHLORIDE
  10. PRAVACHOL [Concomitant]
     Active Substance: PRAVASTATIN SODIUM
  11. LOPRESSOR [Concomitant]
     Active Substance: METOPROLOL TARTRATE
  12. ETHICOL [Concomitant]
  13. SYNTHROID [Concomitant]
     Active Substance: LEVOTHYROXINE SODIUM

REACTIONS (7)
  - Nausea [Not Recovered/Not Resolved]
  - Product quality issue [Recovered/Resolved]
  - Headache [Not Recovered/Not Resolved]
  - Back pain [Not Recovered/Not Resolved]
  - Abdominal pain upper [Not Recovered/Not Resolved]
  - Dysgeusia [Not Recovered/Not Resolved]
  - Diarrhoea [Not Recovered/Not Resolved]

NARRATIVE: CASE EVENT DATE: 20150810
